FAERS Safety Report 25023429 (Version 1)
Quarter: 2025Q1

REPORT INFORMATION
  Report Type: Spontaneous
  Country: CA (occurrence: CA)
  Receive Date: 20250228
  Receipt Date: 20250228
  Transmission Date: 20250409
  Serious: Yes (Congenital Anomaly, Other)
  Sender: MYLAN
  Company Number: CA-MYLANLABS-2025M1017227

PATIENT

DRUGS (16)
  1. CELECOXIB [Suspect]
     Active Substance: CELECOXIB
     Indication: Product used for unknown indication
  2. CELECOXIB [Suspect]
     Active Substance: CELECOXIB
  3. CELECOXIB [Suspect]
     Active Substance: CELECOXIB
     Route: 064
  4. CELECOXIB [Suspect]
     Active Substance: CELECOXIB
     Route: 064
  5. CELECOXIB [Suspect]
     Active Substance: CELECOXIB
  6. CELECOXIB [Suspect]
     Active Substance: CELECOXIB
  7. CELECOXIB [Suspect]
     Active Substance: CELECOXIB
     Route: 064
  8. CELECOXIB [Suspect]
     Active Substance: CELECOXIB
     Route: 064
  9. CELECOXIB [Suspect]
     Active Substance: CELECOXIB
  10. CELECOXIB [Suspect]
     Active Substance: CELECOXIB
     Route: 064
  11. CELECOXIB [Suspect]
     Active Substance: CELECOXIB
  12. CELECOXIB [Suspect]
     Active Substance: CELECOXIB
  13. CELECOXIB [Suspect]
     Active Substance: CELECOXIB
     Route: 064
  14. CELECOXIB [Suspect]
     Active Substance: CELECOXIB
     Route: 064
  15. CELECOXIB [Suspect]
     Active Substance: CELECOXIB
  16. CELECOXIB [Suspect]
     Active Substance: CELECOXIB
     Route: 064

REACTIONS (2)
  - Congenital anomaly [Recovered/Resolved]
  - Foetal exposure during pregnancy [Recovered/Resolved]
